FAERS Safety Report 24776437 (Version 1)
Quarter: 2024Q4

REPORT INFORMATION
  Report Type: Spontaneous
  Country: DE (occurrence: DE)
  Receive Date: 20241226
  Receipt Date: 20241226
  Transmission Date: 20250115
  Serious: Yes (Other)
  Sender: STRIDES
  Company Number: None

PATIENT
  Age: 73 Year
  Sex: Male

DRUGS (6)
  1. PREDNISOLONE [Suspect]
     Active Substance: PREDNISOLONE
     Indication: Diffuse large B-cell lymphoma stage IV
     Dosage: 3 CYCLES WERE GIVEN
     Route: 065
     Dates: start: 202302, end: 202304
  2. RITUXIMAB [Suspect]
     Active Substance: RITUXIMAB
     Indication: Diffuse large B-cell lymphoma stage IV
     Dosage: 3 CYCLES WERE GIVEN
     Route: 065
     Dates: start: 202302, end: 202304
  3. CYCLOPHOSPHAMIDE [Suspect]
     Active Substance: CYCLOPHOSPHAMIDE
     Indication: Diffuse large B-cell lymphoma stage IV
     Dosage: 3 CYCLES WERE GIVEN
     Route: 065
     Dates: start: 202302, end: 202304
  4. MITOXANTRONE [Suspect]
     Active Substance: MITOXANTRONE HYDROCHLORIDE
     Indication: Diffuse large B-cell lymphoma stage IV
     Dosage: 3 CYCLES WERE GIVEN
     Route: 065
     Dates: start: 202302, end: 202304
  5. VINCRISTINE [Suspect]
     Active Substance: VINCRISTINE
     Indication: Diffuse large B-cell lymphoma stage IV
     Dosage: 3 CYCLES WERE GIVEN
     Route: 065
     Dates: start: 202302, end: 202304
  6. METHOTREXATE [Concomitant]
     Active Substance: METHOTREXATE
     Indication: Rheumatoid arthritis
     Dosage: 15 MILLIGRAM, ONCE A WEEK
     Route: 065
     Dates: start: 2011

REACTIONS (1)
  - Neutropenia [Unknown]

NARRATIVE: CASE EVENT DATE: 20230101
